FAERS Safety Report 5553438-3 (Version None)
Quarter: 2007Q4

REPORT INFORMATION
  Report Type: 
  Country: None (occurrence: None)
  Receive Date: 20071213
  Receipt Date: 20071211
  Transmission Date: 20080405
  Serious: Yes (Other)
  Sender: FDA-Public Use
  Company Number: BR-BRISTOL-MYERS SQUIBB COMPANY-14010219

PATIENT
  Age: 45 Month
  Sex: Male

DRUGS (3)
  1. EFAVIRENZ [Suspect]
  2. DIDANOSINE [Suspect]
  3. ZIDOVUDINE [Suspect]

REACTIONS (1)
  - ENCEPHALOPATHY [None]
